FAERS Safety Report 10380755 (Version 1)
Quarter: 2014Q1

REPORT INFORMATION
  Report Type: Spontaneous
  Country: US (occurrence: None)
  Receive Date: 20140306
  Receipt Date: 20140306
  Transmission Date: 20141002
  Serious: Yes (Other)
  Sender: FDA-Public Use
  Company Number: 163-21880-13111457

PATIENT
  Age: 60 Year
  Sex: Male

DRUGS (3)
  1. REVLIMID (LENALIDOMIDE) [Suspect]
     Indication: PLASMA CELL MYELOMA
     Dosage: 7 IN 14D, PO
     Dates: start: 20130925
  2. VELCADE (BORTEZOMIB) [Concomitant]
  3. ZOMETA (ZOLEDRONIC ACID) [Concomitant]

REACTIONS (2)
  - Urine abnormality [None]
  - Muscle spasms [None]
